FAERS Safety Report 19691806 (Version 6)
Quarter: 2021Q3

REPORT INFORMATION
  Report Type: Report from Study
  Country: BR (occurrence: BR)
  Receive Date: 20210812
  Receipt Date: 20210924
  Transmission Date: 20211014
  Serious: Yes (Hospitalization)
  Sender: FDA-Public Use
  Company Number: BR-ROCHE-2888133

PATIENT
  Age: 35 Year
  Sex: Male
  Weight: 67 kg

DRUGS (5)
  1. DOXYCYCLINE. [Concomitant]
     Active Substance: DOXYCYCLINE
     Indication: ACNE
     Route: 048
     Dates: start: 20210303
  2. COBIMETINIB. [Suspect]
     Active Substance: COBIMETINIB
     Indication: METASTATIC MALIGNANT MELANOMA
     Dosage: ON 30/JUL/2021, HE RECEIVED MOST RECENT DOSE OF COBIMETINIB (60 MG) PRIOR TO ONSET OF SERIOUS ADVERS
     Route: 048
     Dates: start: 20180421
  3. VEMURAFENIB. [Suspect]
     Active Substance: VEMURAFENIB
     Indication: METASTATIC MALIGNANT MELANOMA
     Dosage: ON 06/AUG/2021, HE RECEIVED MOST RECENT DOSE OF VEMURAFENIB (118 TABLET) PRIOR TO ONSET OF SERIOUS A
     Route: 048
     Dates: start: 20180420
  4. GLYCARE [Concomitant]
     Indication: DERMATITIS ACNEIFORM
     Route: 061
     Dates: start: 20180514
  5. ATEZOLIZUMAB. [Suspect]
     Active Substance: ATEZOLIZUMAB
     Indication: METASTATIC MALIGNANT MELANOMA
     Route: 041

REACTIONS (1)
  - Pneumonitis [Recovered/Resolved]

NARRATIVE: CASE EVENT DATE: 20210806
